FAERS Safety Report 9717543 (Version 2)
Quarter: 2013Q4

REPORT INFORMATION
  Report Type: Spontaneous
  Country: US (occurrence: US)
  Receive Date: 20131127
  Receipt Date: 20131127
  Transmission Date: 20140711
  Serious: Yes (Hospitalization)
  Sender: FDA-Public Use
  Company Number: US-GILEAD-2009-0020508

PATIENT
  Age: 52 Year
  Sex: Female
  Weight: 103.42 kg

DRUGS (10)
  1. LETAIRIS [Suspect]
     Indication: PULMONARY ARTERIAL HYPERTENSION
     Route: 048
  2. REVATIO [Concomitant]
  3. LISINOPRIL [Concomitant]
  4. COUMADIN [Concomitant]
  5. LOVENOX [Concomitant]
  6. PREDNISONE [Concomitant]
  7. VICODIN [Concomitant]
  8. REGLAN [Concomitant]
  9. NEXIUM [Concomitant]
  10. K-DUR [Concomitant]

REACTIONS (1)
  - Face oedema [Recovered/Resolved]
